FAERS Safety Report 12713320 (Version 4)
Quarter: 2020Q2

REPORT INFORMATION
  Report Type: Spontaneous
  Country: CA (occurrence: CA)
  Receive Date: 20160902
  Receipt Date: 20200615
  Transmission Date: 20200713
  Serious: Yes (Hospitalization, Other)
  Sender: FDA-Public Use
  Company Number: CA-BAXTER-2016BAX045339

PATIENT
  Age: 58 Year
  Sex: Female

DRUGS (35)
  1. PROPOFOL. [Suspect]
     Active Substance: PROPOFOL
     Indication: ELECTROENCEPHALOGRAM ABNORMAL
     Route: 065
  2. LEVETIRACETAM. [Suspect]
     Active Substance: LEVETIRACETAM
     Indication: SEIZURE
     Dosage: DOSAGE FORM: TABLET
     Route: 065
  3. MIDAZOLAM. [Suspect]
     Active Substance: MIDAZOLAM
     Indication: STATUS EPILEPTICUS
  4. LEVETIRACETAM. [Concomitant]
     Active Substance: LEVETIRACETAM
     Indication: PRODUCT USED FOR UNKNOWN INDICATION
     Route: 065
  5. METHYLPREDNISOLONE NOS [Concomitant]
     Active Substance: METHYLPREDNISOLONE
     Indication: PRODUCT USED FOR UNKNOWN INDICATION
     Route: 065
  6. FORANE [Suspect]
     Active Substance: ISOFLURANE
     Indication: SEIZURE
     Route: 065
  7. FORANE [Suspect]
     Active Substance: ISOFLURANE
     Indication: STATUS EPILEPTICUS
  8. VALPROIC ACID. [Suspect]
     Active Substance: VALPROIC ACID
     Indication: STATUS EPILEPTICUS
     Dosage: DOSAGE FORM: NOT SPECIFIED
     Route: 065
  9. PHENOBARBITAL. [Suspect]
     Active Substance: PHENOBARBITAL
     Indication: SEIZURE
     Route: 065
  10. PHENOBARBITAL. [Suspect]
     Active Substance: PHENOBARBITAL
     Indication: STATUS EPILEPTICUS
     Dosage: DOSAGE FORM: NOT SPECIFIED
     Route: 065
  11. PHENYTOIN. [Suspect]
     Active Substance: PHENYTOIN
     Indication: STATUS EPILEPTICUS
     Dosage: DOSAGE FORM: NOT SPECIFIED
     Route: 065
  12. METHYLPREDNISOLONE SODIUM SUCCINATE. [Suspect]
     Active Substance: METHYLPREDNISOLONE SODIUM SUCCINATE
     Indication: PRODUCT USED FOR UNKNOWN INDICATION
     Route: 042
  13. PROPOFOL. [Suspect]
     Active Substance: PROPOFOL
     Indication: SEIZURE
     Route: 065
  14. PROPOFOL. [Suspect]
     Active Substance: PROPOFOL
     Indication: STATUS EPILEPTICUS
  15. KETAMINE HYDROCHLORIDE. [Suspect]
     Active Substance: KETAMINE HYDROCHLORIDE
     Indication: STATUS EPILEPTICUS
     Dosage: SOLUTION INTRAMUSCULAR INJECTION USP
     Route: 065
  16. KETAMINE HYDROCHLORIDE. [Suspect]
     Active Substance: KETAMINE HYDROCHLORIDE
     Dosage: DOSAGE FORM: NOT SPECIFIED
     Route: 065
  17. MIDAZOLAM. [Suspect]
     Active Substance: MIDAZOLAM
     Indication: ELECTROENCEPHALOGRAM ABNORMAL
     Dosage: SOLUTION INTRAMUSCULAR
     Route: 065
  18. METHYLPREDNISOLONE. [Suspect]
     Active Substance: METHYLPREDNISOLONE
     Indication: PRODUCT USED FOR UNKNOWN INDICATION
     Route: 042
  19. METHYLPREDNISOLONE. [Concomitant]
     Active Substance: METHYLPREDNISOLONE
     Indication: STATUS EPILEPTICUS
     Dosage: DOSAGE FORM: NOT SPECIFIED
     Route: 042
  20. PHENOBARBITAL. [Concomitant]
     Active Substance: PHENOBARBITAL
     Indication: PRODUCT USED FOR UNKNOWN INDICATION
     Dosage: SOLUTION INTRAMUSCULAR
     Route: 065
  21. VALPROIC ACID. [Concomitant]
     Active Substance: VALPROIC ACID
     Indication: PRODUCT USED FOR UNKNOWN INDICATION
     Route: 065
  22. MIDAZOLAM. [Suspect]
     Active Substance: MIDAZOLAM
     Indication: SEIZURE
     Route: 065
  23. VALPROIC ACID. [Suspect]
     Active Substance: VALPROIC ACID
     Indication: SEIZURE
     Dosage: DOSAGE FORM: NOT SPECIFIED
     Route: 065
  24. APO-LEVETIRACETAM [Suspect]
     Active Substance: LEVETIRACETAM
     Indication: STATUS EPILEPTICUS
     Route: 065
  25. APO-MIDAZOLAM [Suspect]
     Active Substance: MIDAZOLAM HYDROCHLORIDE
     Indication: STATUS EPILEPTICUS
     Dosage: LIQUID INTRAMUSCULAR
     Route: 065
  26. PHENOBARBITAL. [Concomitant]
     Active Substance: PHENOBARBITAL
     Route: 065
  27. PHENYTOIN. [Concomitant]
     Active Substance: PHENYTOIN
     Indication: SEIZURE
     Route: 065
  28. LEVETIRACETAM. [Suspect]
     Active Substance: LEVETIRACETAM
     Indication: STATUS EPILEPTICUS
     Dosage: DOSAGE FORM: TABLET
     Route: 065
  29. PHENYTOIN. [Suspect]
     Active Substance: PHENYTOIN
     Indication: SEIZURE
     Dosage: DOSAGE FORM: NOT SPECIFIED
     Route: 065
  30. PIPERACILLIN SODIUM/TAZOBACTAM SODIUM [Concomitant]
     Active Substance: PIPERACILLIN SODIUM\TAZOBACTAM SODIUM
     Indication: PRODUCT USED FOR UNKNOWN INDICATION
     Route: 065
  31. PIPERACILLIN SODIUM/TAZOBACTAM SODIUM [Concomitant]
     Active Substance: PIPERACILLIN SODIUM\TAZOBACTAM SODIUM
     Indication: APPENDICITIS
     Route: 065
  32. FORANE [Suspect]
     Active Substance: ISOFLURANE
     Indication: OFF LABEL USE
     Dosage: LIQUID INHALATION
     Route: 065
  33. MIDAZOLAM HYDROCHLORIDE. [Suspect]
     Active Substance: MIDAZOLAM HYDROCHLORIDE
     Indication: SEIZURE
     Route: 065
  34. PHENOBARBITAL. [Suspect]
     Active Substance: PHENOBARBITAL
     Dosage: DOSAGE FORM: NOT SPECIFIED
     Route: 065
  35. TEGRETOL [Concomitant]
     Active Substance: CARBAMAZEPINE
     Indication: PRODUCT USED FOR UNKNOWN INDICATION
     Route: 065

REACTIONS (16)
  - Pneumatosis [Recovered/Resolved]
  - Abscess [Unknown]
  - Necrosis ischaemic [Recovered/Resolved]
  - Drug ineffective for unapproved indication [Recovered/Resolved]
  - Vomiting [Recovered/Resolved]
  - Systemic inflammatory response syndrome [Recovered/Resolved]
  - Intestinal ischaemia [Recovered/Resolved]
  - Cardiomegaly [Recovered/Resolved]
  - Left ventricular hypertrophy [Recovered/Resolved]
  - Perforation [Recovered/Resolved]
  - Procedural intestinal perforation [Unknown]
  - Maternal exposure during pregnancy [Recovered/Resolved]
  - Abdominal distension [Recovered/Resolved]
  - Intra-abdominal pressure increased [Recovered/Resolved]
  - Off label use [Recovered/Resolved]
  - Hypotension [Recovered/Resolved]
